FAERS Safety Report 6250780-8 (Version None)
Quarter: 2009Q2

REPORT INFORMATION
  Report Type: 
  Country: None (occurrence: None)
  Receive Date: 20090630
  Receipt Date: 20081016
  Transmission Date: 20091009
  Serious: No
  Sender: FDA-Public Use
  Company Number: US-ABBOTT-08P-163-0482318-00

PATIENT
  Sex: Female
  Weight: 102.15 kg

DRUGS (15)
  1. ZEMPLAR [Suspect]
     Indication: HYPERPARATHYROIDISM
     Dates: start: 20080801
  2. SERETIDE [Concomitant]
     Indication: DRUG USE FOR UNKNOWN INDICATION
     Dosage: NOT REPORTED
  3. ALBUTEROL [Concomitant]
     Indication: DRUG USE FOR UNKNOWN INDICATION
     Dosage: NOT REPORTED
  4. REGULAR INSULIN [Concomitant]
     Indication: DIABETES MELLITUS
     Dosage: 50 UNITS/DAY (30UNITS IN AM, 20 UNITS BEFORE DINNER
     Route: 058
     Dates: start: 19850101
  5. FUROSEMIDE INTENSOL [Concomitant]
     Indication: DIURETIC THERAPY
     Dosage: 80MG IN AM, 40MG AT BEDTIME
     Route: 048
  6. ZESICARE [Concomitant]
     Indication: DRUG USE FOR UNKNOWN INDICATION
     Dosage: NOT REPORTED
  7. AMLODIPINE W/VALSARTAN [Concomitant]
     Indication: HYPERTENSION
     Dosage: NOT REPORTED
     Route: 048
  8. LEVOTHYROXINE SODIUM [Concomitant]
     Indication: HYPERTHYROIDISM
     Dosage: NOT REPORTED
     Route: 048
  9. ATORVASTATIN CALCIUM [Concomitant]
     Indication: DRUG USE FOR UNKNOWN INDICATION
     Dosage: NOT REPORTED
  10. SPIRONOLACTONE [Concomitant]
     Indication: DRUG USE FOR UNKNOWN INDICATION
     Dosage: NOT REPORTED
  11. SOLIFENACIN SUCCINATE [Concomitant]
     Indication: INCONTINENCE
     Route: 048
  12. MONTELUKAST [Concomitant]
     Indication: HYPERSENSITIVITY
     Dosage: NOT REPORTED
     Route: 048
  13. SPIRONOLACTONE [Concomitant]
     Indication: DIURETIC THERAPY
     Route: 048
  14. DOCUSATE SODIUM [Concomitant]
     Indication: CONSTIPATION
     Route: 048
  15. LEVOFLOXACIN [Concomitant]
     Indication: PNEUMONIA
     Route: 048
     Dates: start: 20081006, end: 20081016

REACTIONS (5)
  - ASTHENIA [None]
  - CONSTIPATION [None]
  - NASOPHARYNGITIS [None]
  - PNEUMONIA [None]
  - VERTIGO [None]
